FAERS Safety Report 19636817 (Version 1)
Quarter: 2021Q3

REPORT INFORMATION
  Report Type: Spontaneous
  Country: FR (occurrence: FR)
  Receive Date: 20210729
  Receipt Date: 20210729
  Transmission Date: 20211014
  Serious: Yes (Hospitalization, Other)
  Sender: FDA-Public Use
  Company Number: FR-PFIZER INC-2021895755

PATIENT
  Age: 72 Year
  Sex: Female
  Weight: 101 kg

DRUGS (2)
  1. CYCLOPHOSPHAMIDE. [Concomitant]
     Active Substance: CYCLOPHOSPHAMIDE
     Indication: BREAST CANCER
     Dosage: 1 G
     Route: 042
     Dates: start: 20210625, end: 20210625
  2. EPIRUBICIN HCL [Suspect]
     Active Substance: EPIRUBICIN HYDROCHLORIDE
     Indication: BREAST CANCER
     Dosage: 150 MG
     Route: 042
     Dates: start: 20210625, end: 20210625

REACTIONS (3)
  - Dermatitis bullous [Not Recovered/Not Resolved]
  - Oedema [Not Recovered/Not Resolved]
  - Extravasation [Not Recovered/Not Resolved]

NARRATIVE: CASE EVENT DATE: 20210625
